FAERS Safety Report 17520403 (Version 1)
Quarter: 2020Q1

REPORT INFORMATION
  Report Type: Spontaneous
  Country: JP (occurrence: JP)
  Receive Date: 20200309
  Receipt Date: 20200309
  Transmission Date: 20200409
  Serious: Yes (Other)
  Sender: FDA-Public Use
  Company Number: JP-GLAXOSMITHKLINE-JP2020GSK038198

PATIENT
  Age: 51 Year
  Sex: Female

DRUGS (7)
  1. EPOPROSTENOL. [Suspect]
     Active Substance: EPOPROSTENOL
     Dosage: 10 NG/KG /MIN
     Route: 042
  2. EPOPROSTENOL. [Suspect]
     Active Substance: EPOPROSTENOL
     Dosage: 2 NG/KG /MIN EVERY WEEK
     Route: 042
  3. EPOPROSTENOL. [Suspect]
     Active Substance: EPOPROSTENOL
     Indication: PULMONARY ARTERIAL HYPERTENSION
     Dosage: 0.25 NG/KG/MIN
     Route: 042
  4. EPOPROSTENOL. [Suspect]
     Active Substance: EPOPROSTENOL
     Dosage: 27 NG/KG/ MIN
     Route: 042
  5. EPOPROSTENOL. [Suspect]
     Active Substance: EPOPROSTENOL
     Dosage: 0.50 NG/KG/ /MIN
     Route: 042
  6. DOBUTAMINE [Concomitant]
     Active Substance: DOBUTAMINE HYDROCHLORIDE
     Indication: PULMONARY ARTERIAL HYPERTENSION
     Dosage: UNK
  7. EPOPROSTENOL. [Suspect]
     Active Substance: EPOPROSTENOL
     Dosage: 34.4 NG/KG /MIN IN 3 MONTHS
     Route: 042

REACTIONS (12)
  - Ascites [Unknown]
  - Right ventricular dysfunction [Unknown]
  - Epistaxis [Unknown]
  - Hepatosplenomegaly [Unknown]
  - Budd-Chiari syndrome [Unknown]
  - Thrombocytopenia [Unknown]
  - Diarrhoea [Unknown]
  - Hepatic congestion [Unknown]
  - Hepatic fibrosis [Unknown]
  - Hepatocellular injury [Unknown]
  - Abdominal distension [Not Recovered/Not Resolved]
  - Anaemia [Unknown]
